FAERS Safety Report 24334967 (Version 1)
Quarter: 2024Q3

REPORT INFORMATION
  Report Type: Spontaneous
  Country: US (occurrence: US)
  Receive Date: 20240918
  Receipt Date: 20240918
  Transmission Date: 20241017
  Serious: No
  Sender: IPSEN
  Company Number: US-IPSEN Group, Research and Development-2024-17906

PATIENT
  Sex: Female

DRUGS (1)
  1. IQIRVO [Suspect]
     Active Substance: ELAFIBRANOR
     Indication: Product used for unknown indication
     Dosage: HAS BEEN ON IQIRVO APPROXIMATELY 1 MONTH
     Route: 065
     Dates: start: 2024

REACTIONS (3)
  - Feeling abnormal [Unknown]
  - Pain in extremity [Unknown]
  - Plantar fasciitis [Unknown]
